FAERS Safety Report 25659867 (Version 1)
Quarter: 2025Q3

REPORT INFORMATION
  Report Type: Spontaneous
  Country: US (occurrence: US)
  Receive Date: 20250808
  Receipt Date: 20250808
  Transmission Date: 20251021
  Serious: No
  Sender: PFIZER
  Company Number: US-PFIZER INC-202500157330

PATIENT
  Age: 16 Year
  Sex: Female

DRUGS (1)
  1. LITFULO [Suspect]
     Active Substance: RITLECITINIB TOSYLATE
     Indication: Alopecia areata
     Dosage: 50 MG CAPSULE QD (TAKE 1 PILL PO QD), SAMPLES GIVEN FOR 28 DAY SUPPLY
     Route: 048
     Dates: start: 20250624

REACTIONS (2)
  - Alopecia areata [Unknown]
  - Condition aggravated [Unknown]

NARRATIVE: CASE EVENT DATE: 20250731
